FAERS Safety Report 19144282 (Version 3)
Quarter: 2021Q4

REPORT INFORMATION
  Report Type: Report from Study
  Country: US (occurrence: US)
  Receive Date: 20210416
  Receipt Date: 20211004
  Transmission Date: 20220303
  Serious: No
  Sender: FDA-Public Use
  Company Number: US-GLAXOSMITHKLINE-US2020AMR255717

PATIENT
  Age: 69 Year
  Sex: Female

DRUGS (1)
  1. BELANTAMAB MAFODOTIN [Suspect]
     Active Substance: BELANTAMAB MAFODOTIN
     Indication: Product used for unknown indication
     Dosage: UNK
     Route: 042
     Dates: start: 20201116

REACTIONS (7)
  - Keratopathy [Unknown]
  - Visual acuity reduced [Unknown]
  - Corneal disorder [Unknown]
  - Night blindness [Unknown]
  - Dry eye [Unknown]
  - Sensation of foreign body [Unknown]
  - Ocular toxicity [Unknown]

NARRATIVE: CASE EVENT DATE: 20210111
